FAERS Safety Report 20974449 (Version 1)
Quarter: 2022Q2

REPORT INFORMATION
  Report Type: Spontaneous
  Country: US (occurrence: US)
  Receive Date: 20220617
  Receipt Date: 20220617
  Transmission Date: 20220721
  Serious: No
  Sender: FDA-Public Use
  Company Number: US-ELI_LILLY_AND_COMPANY-US202206008064

PATIENT
  Age: 2 Year
  Sex: Male

DRUGS (2)
  1. OLUMIANT [Suspect]
     Active Substance: BARICITINIB
     Indication: Congenital central nervous system anomaly
     Dosage: 3 MG, BID
     Route: 048
     Dates: start: 202204
  2. OLUMIANT [Suspect]
     Active Substance: BARICITINIB
     Indication: Multiple congenital abnormalities

REACTIONS (2)
  - Prescribed overdose [Unknown]
  - Off label use [Unknown]

NARRATIVE: CASE EVENT DATE: 20220615
